FAERS Safety Report 17920878 (Version 1)
Quarter: 2020Q2

REPORT INFORMATION
  Report Type: Spontaneous
  Country: IN (occurrence: IN)
  Receive Date: 20200622
  Receipt Date: 20200622
  Transmission Date: 20200714
  Serious: Yes (Hospitalization)
  Sender: FDA-Public Use
  Company Number: IN-ROCHE-2624965

PATIENT
  Age: 63 Year
  Sex: Male
  Weight: 47.6 kg

DRUGS (43)
  1. DOXORUBICIN HYDROCHLORIDE. [Suspect]
     Active Substance: DOXORUBICIN HYDROCHLORIDE
     Dosage: DOSAGE STRENGTH: 50 MG/25 ML, PRESCRIBED DURATION OF TREATMENT -6 CYCLES,TOTAL DURATION OF TREATMENT
     Route: 042
     Dates: start: 20200222, end: 20200222
  2. DOXORUBICIN HYDROCHLORIDE. [Suspect]
     Active Substance: DOXORUBICIN HYDROCHLORIDE
     Dosage: DOSAGE STRENGTH: 50 MG/25 ML, PRESCRIBED DURATION OF TREATMENT -6 CYCLES,TOTAL DURATION OF TREATMENT
     Route: 042
     Dates: start: 20200408, end: 20200408
  3. DOXORUBICIN HYDROCHLORIDE. [Suspect]
     Active Substance: DOXORUBICIN HYDROCHLORIDE
     Dosage: DOSAGE STRENGTH: 50 MG/25 ML, PRESCRIBED DURATION OF TREATMENT -6 CYCLES,TOTAL DURATION OF TREATMENT
     Route: 042
     Dates: start: 20200429, end: 20200429
  4. VINCRISTINE [Suspect]
     Active Substance: VINCRISTINE
     Dosage: PRESCRIBED DURATION OF TREATMENT -6 CYCLES,TOTAL DURATION OF TREATMENT-8 DAYS, TOTAL NUMBER OF DOSES
     Route: 042
     Dates: start: 20200408, end: 20200408
  5. PREDNISOLONE. [Suspect]
     Active Substance: PREDNISOLONE
     Indication: DIFFUSE LARGE B-CELL LYMPHOMA
     Dosage: PRESCRIBED DURATION OF TREATMENT -6 CYCLES,TOTAL DURATION OF TREATMENT-8 DAYS, TOTAL NUMBER OF DOSES
     Route: 048
     Dates: start: 20200201, end: 20200201
  6. PREDNISOLONE. [Suspect]
     Active Substance: PREDNISOLONE
     Dosage: PRESCRIBED DURATION OF TREATMENT -6 CYCLES,TOTAL DURATION OF TREATMENT-8 DAYS, TOTAL NUMBER OF DOSES
     Route: 048
     Dates: start: 20200429, end: 20200429
  7. PARACETAMOL [Concomitant]
     Active Substance: ACETAMINOPHEN
     Route: 048
     Dates: start: 20200521, end: 20200521
  8. GRANISETRON [Concomitant]
     Active Substance: GRANISETRON
     Indication: VOMITING
  9. RITUXIMAB. [Suspect]
     Active Substance: RITUXIMAB
     Dosage: PRESCRIBED DURATION OF TREATMENT -6 CYCLES,TOTAL DURATION OF TREATMENT-8 DAYS, TOTAL NUMBER OF DOSES
     Route: 042
     Dates: start: 20200222, end: 20200222
  10. CYCLOPHOSPHAMIDE. [Suspect]
     Active Substance: CYCLOPHOSPHAMIDE
     Dosage: DOSAGE FORM AND STRENGTH-1000 MG AND 500 MG, PRESCRIBED DURATION OF TREATMENT -6 CYCLES,TOTAL?DURATI
     Route: 042
     Dates: start: 20200316, end: 20200316
  11. CYCLOPHOSPHAMIDE. [Suspect]
     Active Substance: CYCLOPHOSPHAMIDE
     Dosage: DOSAGE FORM AND STRENGTH-1000 MG AND 500 MG, PRESCRIBED DURATION OF TREATMENT -6 CYCLES,TOTAL?DURATI
     Route: 042
     Dates: start: 20200429, end: 20200429
  12. PANTOPRAZOLE [Concomitant]
     Active Substance: PANTOPRAZOLE
     Route: 042
     Dates: start: 20200521, end: 20200521
  13. RITUXIMAB. [Suspect]
     Active Substance: RITUXIMAB
     Dosage: PRESCRIBED DURATION OF TREATMENT -6 CYCLES,TOTAL DURATION OF TREATMENT-8 DAYS, TOTAL NUMBER OF DOSES
     Route: 042
     Dates: start: 20200316, end: 20200316
  14. RITUXIMAB. [Suspect]
     Active Substance: RITUXIMAB
     Dosage: PRESCRIBED DURATION OF TREATMENT -6 CYCLES,TOTAL DURATION OF TREATMENT-8 DAYS, TOTAL NUMBER OF DOSES
     Route: 042
     Dates: start: 20200408, end: 20200408
  15. PHENIRAMINE MALEATE [Concomitant]
     Active Substance: PHENIRAMINE MALEATE
     Route: 048
     Dates: start: 20200521, end: 20200521
  16. PALONOSETRON. [Concomitant]
     Active Substance: PALONOSETRON HYDROCHLORIDE
     Route: 042
     Dates: start: 20200521, end: 20200521
  17. DOXORUBICIN HYDROCHLORIDE. [Suspect]
     Active Substance: DOXORUBICIN HYDROCHLORIDE
     Dosage: DOSAGE STRENGTH: 50 MG/25 ML, PRESCRIBED DURATION OF TREATMENT -6 CYCLES,TOTAL DURATION OF TREATMENT
     Route: 042
     Dates: start: 20200521, end: 20200521
  18. CYCLOPHOSPHAMIDE. [Suspect]
     Active Substance: CYCLOPHOSPHAMIDE
     Dosage: DOSAGE FORM AND STRENGTH-1000 MG AND 500 MG, PRESCRIBED DURATION OF TREATMENT -6 CYCLES,TOTAL?DURATI
     Route: 042
     Dates: start: 20200521, end: 20200521
  19. GRANISETRON [Concomitant]
     Active Substance: GRANISETRON
     Indication: NAUSEA
     Route: 048
     Dates: start: 20200522, end: 20200525
  20. VINCRISTINE [Suspect]
     Active Substance: VINCRISTINE
     Dosage: PRESCRIBED DURATION OF TREATMENT -6 CYCLES,TOTAL DURATION OF TREATMENT-8 DAYS, TOTAL NUMBER OF DOSES
     Route: 042
     Dates: start: 20200222, end: 20200222
  21. PREDNISOLONE. [Suspect]
     Active Substance: PREDNISOLONE
     Dosage: PRESCRIBED DURATION OF TREATMENT -6 CYCLES,TOTAL DURATION OF TREATMENT-8 DAYS, TOTAL NUMBER OF DOSES
     Route: 048
     Dates: start: 20200408, end: 20200408
  22. PREDNISOLONE. [Suspect]
     Active Substance: PREDNISOLONE
     Dosage: PRESCRIBED DURATION OF TREATMENT -6 CYCLES,TOTAL DURATION OF TREATMENT-8 DAYS, TOTAL NUMBER OF DOSES
     Route: 048
     Dates: start: 20200521, end: 20200521
  23. HYDROCORTISONE. [Concomitant]
     Active Substance: HYDROCORTISONE
     Route: 042
     Dates: start: 20200521, end: 20200521
  24. DOMPERIDONE [Concomitant]
     Active Substance: DOMPERIDONE
     Indication: NAUSEA
     Route: 048
     Dates: start: 20200522, end: 20200526
  25. DNS [Concomitant]
     Route: 042
     Dates: start: 20200528, end: 20200528
  26. DNS [Concomitant]
     Route: 042
     Dates: start: 20200529, end: 20200529
  27. RITUXIMAB. [Suspect]
     Active Substance: RITUXIMAB
     Indication: DIFFUSE LARGE B-CELL LYMPHOMA
     Dosage: PRESCRIBED DURATION OF TREATMENT -6 CYCLES,TOTAL DURATION OF TREATMENT-8 DAYS, TOTAL NUMBER OF DOSES
     Route: 042
     Dates: start: 20200201, end: 20200201
  28. RITUXIMAB. [Suspect]
     Active Substance: RITUXIMAB
     Dosage: PRESCRIBED DURATION OF TREATMENT -6 CYCLES,TOTAL DURATION OF TREATMENT-8 DAYS, TOTAL NUMBER OF DOSES
     Route: 042
     Dates: start: 20200429, end: 20200429
  29. DOXORUBICIN HYDROCHLORIDE. [Suspect]
     Active Substance: DOXORUBICIN HYDROCHLORIDE
     Dosage: DOSAGE STRENGTH: 50 MG/25 ML, PRESCRIBED DURATION OF TREATMENT -6 CYCLES,TOTAL DURATION OF TREATMENT
     Route: 042
     Dates: start: 20200316, end: 20200316
  30. VINCRISTINE [Suspect]
     Active Substance: VINCRISTINE
     Indication: DIFFUSE LARGE B-CELL LYMPHOMA
     Dosage: PRESCRIBED DURATION OF TREATMENT -6 CYCLES,TOTAL DURATION OF TREATMENT-8 DAYS, TOTAL NUMBER OF DOSES
     Route: 042
     Dates: start: 20200201, end: 20200201
  31. VINCRISTINE [Suspect]
     Active Substance: VINCRISTINE
     Dosage: PRESCRIBED DURATION OF TREATMENT -6 CYCLES,TOTAL DURATION OF TREATMENT-8 DAYS, TOTAL NUMBER OF DOSES
     Route: 042
     Dates: start: 20200316, end: 20200316
  32. VINCRISTINE [Suspect]
     Active Substance: VINCRISTINE
     Dosage: PRESCRIBED DURATION OF TREATMENT -6 CYCLES,TOTAL DURATION OF TREATMENT-8 DAYS, TOTAL NUMBER OF DOSES
     Route: 042
     Dates: start: 20200521, end: 20200521
  33. PREDNISOLONE. [Suspect]
     Active Substance: PREDNISOLONE
     Dosage: PRESCRIBED DURATION OF TREATMENT -6 CYCLES,TOTAL DURATION OF TREATMENT-8 DAYS, TOTAL NUMBER OF DOSES
     Route: 048
     Dates: start: 20200222, end: 20200222
  34. PREDNISOLONE. [Suspect]
     Active Substance: PREDNISOLONE
     Dosage: PRESCRIBED DURATION OF TREATMENT -6 CYCLES,TOTAL DURATION OF TREATMENT-8 DAYS, TOTAL NUMBER OF DOSES
     Route: 048
     Dates: start: 20200316, end: 20200316
  35. METOCLOPRAMIDE. [Concomitant]
     Active Substance: METOCLOPRAMIDE
     Dosage: 10 MG IN 100 ML NORMAL SALINE
     Route: 042
     Dates: start: 20200521, end: 20200521
  36. DOMPERIDONE [Concomitant]
     Active Substance: DOMPERIDONE
     Indication: VOMITING
  37. RITUXIMAB. [Suspect]
     Active Substance: RITUXIMAB
     Dosage: PRESCRIBED DURATION OF TREATMENT -6 CYCLES,TOTAL DURATION OF TREATMENT-8 DAYS, TOTAL NUMBER OF DOSES
     Route: 042
     Dates: start: 20200521, end: 20200521
  38. DOXORUBICIN HYDROCHLORIDE. [Suspect]
     Active Substance: DOXORUBICIN HYDROCHLORIDE
     Indication: DIFFUSE LARGE B-CELL LYMPHOMA
     Dosage: DOSAGE STRENGTH: 50 MG/25 ML, PRESCRIBED DURATION OF TREATMENT -6 CYCLES,TOTAL DURATION OF TREATMENT
     Route: 042
     Dates: start: 20200201, end: 20200201
  39. CYCLOPHOSPHAMIDE. [Suspect]
     Active Substance: CYCLOPHOSPHAMIDE
     Indication: DIFFUSE LARGE B-CELL LYMPHOMA
     Dosage: DOSAGE FORM AND STRENGTH-1000 MG AND 500 MG, PRESCRIBED DURATION OF TREATMENT -6 CYCLES,TOTAL?DURATI
     Route: 042
     Dates: start: 20200201, end: 20200201
  40. CYCLOPHOSPHAMIDE. [Suspect]
     Active Substance: CYCLOPHOSPHAMIDE
     Dosage: DOSAGE FORM AND STRENGTH-1000 MG AND 500 MG, PRESCRIBED DURATION OF TREATMENT -6 CYCLES,TOTAL?DURATI
     Route: 042
     Dates: start: 20200222, end: 20200222
  41. CYCLOPHOSPHAMIDE. [Suspect]
     Active Substance: CYCLOPHOSPHAMIDE
     Dosage: DOSAGE FORM AND STRENGTH-1000 MG AND 500 MG, PRESCRIBED DURATION OF TREATMENT -6 CYCLES,TOTAL?DURATI
     Route: 042
     Dates: start: 20200408, end: 20200408
  42. VINCRISTINE [Suspect]
     Active Substance: VINCRISTINE
     Dosage: PRESCRIBED DURATION OF TREATMENT -6 CYCLES,TOTAL DURATION OF TREATMENT-8 DAYS, TOTAL NUMBER OF DOSES
     Route: 042
     Dates: start: 20200429, end: 20200429
  43. DNS [Concomitant]
     Route: 042
     Dates: start: 20200530, end: 20200530

REACTIONS (2)
  - Colitis [Recovered/Resolved]
  - Neutropenia [Recovered/Resolved]

NARRATIVE: CASE EVENT DATE: 20200528
